FAERS Safety Report 18863590 (Version 2)
Quarter: 2021Q1

REPORT INFORMATION
  Report Type: Report from Study
  Country: CN (occurrence: CN)
  Receive Date: 20210208
  Receipt Date: 20210330
  Transmission Date: 20210420
  Serious: Yes (Hospitalization)
  Sender: FDA-Public Use
  Company Number: NVSC2021CN024603

PATIENT
  Age: 53 Year
  Sex: Male

DRUGS (7)
  1. ZYKADIA [Suspect]
     Active Substance: CERITINIB
     Indication: NON-SMALL CELL LUNG CANCER
     Dosage: 450 MG, QD
     Route: 048
     Dates: start: 20190604
  2. ZYKADIA [Suspect]
     Active Substance: CERITINIB
     Dosage: 3 DF (A DAY)
     Route: 048
  3. OLANZAPINE. [Concomitant]
     Active Substance: OLANZAPINE
     Dosage: HALF A PILL/TIME, 2.5G/DAY EVERY NIGHT
     Route: 048
     Dates: start: 202011
  4. CLONAZEPAM. [Concomitant]
     Active Substance: CLONAZEPAM
     Indication: PRODUCT USED FOR UNKNOWN INDICATION
     Dosage: 1 TABLET/TIME
     Route: 048
     Dates: start: 201911
  5. ZYKADIA [Suspect]
     Active Substance: CERITINIB
     Dosage: 2 DF (A DAY)
     Route: 048
  6. OLANZAPINE. [Concomitant]
     Active Substance: OLANZAPINE
     Indication: PRODUCT USED FOR UNKNOWN INDICATION
     Dosage: 1 PILL/TIME 5G/DAY EVERY NIGHT
     Route: 048
     Dates: start: 201911
  7. CLONAZEPAM. [Concomitant]
     Active Substance: CLONAZEPAM
     Dosage: HALF A TABLET/TIME
     Route: 048
     Dates: start: 202011

REACTIONS (4)
  - Generalised oedema [Recovering/Resolving]
  - Protein total decreased [Recovering/Resolving]
  - Retching [Recovered/Resolved]
  - Diarrhoea [Recovered/Resolved]

NARRATIVE: CASE EVENT DATE: 20190604
